FAERS Safety Report 20045568 (Version 1)
Quarter: 2021Q4

REPORT INFORMATION
  Report Type: Spontaneous
  Country: CN (occurrence: CN)
  Receive Date: 20211108
  Receipt Date: 20211108
  Transmission Date: 20220303
  Serious: Yes (Death, Hospitalization, Other)
  Sender: FDA-Public Use
  Company Number: CN-BoehringerIngelheim-2021-BI-136681

PATIENT
  Age: 58 Year
  Sex: Male

DRUGS (2)
  1. GILOTRIF [Suspect]
     Active Substance: AFATINIB
     Indication: Non-small cell lung cancer
     Route: 048
     Dates: start: 20190727, end: 201910
  2. GILOTRIF [Suspect]
     Active Substance: AFATINIB
     Indication: EGFR gene mutation

REACTIONS (4)
  - Respiratory failure [Fatal]
  - Interstitial lung disease [Not Recovered/Not Resolved]
  - Diarrhoea [Unknown]
  - Therapy partial responder [Unknown]

NARRATIVE: CASE EVENT DATE: 20190101
